FAERS Safety Report 4474165-X (Version None)
Quarter: 2004Q4

REPORT INFORMATION
  Report Type: 
  Country: None (occurrence: None)
  Receive Date: 20041013
  Receipt Date: 20041013
  Transmission Date: 20050328
  Serious: Yes (Other)
  Sender: FDA-Public Use
  Company Number: None

PATIENT
  Sex: Male
  Weight: 108.4097 kg

DRUGS (4)
  1. PRAVACHOL [Suspect]
     Indication: HYPERCHOLESTEROLAEMIA
     Dosage: 80 MG QHS PO
     Route: 048
     Dates: start: 20030409, end: 20040830
  2. TOPROL-XL [Concomitant]
  3. HYGROTON [Concomitant]
  4. KCL TAB [Concomitant]

REACTIONS (2)
  - MUSCULOSKELETAL STIFFNESS [None]
  - MYALGIA [None]
